FAERS Safety Report 9218929 (Version 1)
Quarter: 2013Q2

REPORT INFORMATION
  Report Type: Spontaneous
  Country: US (occurrence: US)
  Receive Date: 20130409
  Receipt Date: 20130409
  Transmission Date: 20140414
  Serious: Yes (Other)
  Sender: FDA-Public Use
  Company Number: US-ROXANE LABORATORIES, INC.-2013-RO-00451RO

PATIENT
  Sex: Female

DRUGS (1)
  1. MONTELUKAST SODIUM [Suspect]
     Dates: start: 201211

REACTIONS (1)
  - Dyspnoea [Unknown]
